FAERS Safety Report 9068952 (Version 1)
Quarter: 2013Q1

REPORT INFORMATION
  Report Type: Spontaneous
  Country: US (occurrence: None)
  Receive Date: 20130213
  Receipt Date: 20130213
  Transmission Date: 20140127
  Serious: Yes (Hospitalization)
  Sender: FDA-Public Use
  Company Number: None

PATIENT
  Age: 51 Year
  Sex: Male
  Weight: 82.5 kg

DRUGS (2)
  1. IBUPROFEN [Suspect]
     Indication: PAIN
     Route: 048
     Dates: start: 20111021, end: 20121115
  2. IBUPROFEN [Suspect]
     Indication: MUSCLE STRAIN
     Route: 048
     Dates: start: 20111021, end: 20121115

REACTIONS (4)
  - Angioedema [None]
  - Urticaria [None]
  - Pruritus [None]
  - Dyspnoea [None]
